FAERS Safety Report 12223528 (Version 2)
Quarter: 2016Q2

REPORT INFORMATION
  Report Type: Spontaneous
  Country: NL (occurrence: NL)
  Receive Date: 20160330
  Receipt Date: 20160407
  Transmission Date: 20160815
  Serious: Yes (Life-Threatening)
  Sender: FDA-Public Use
  Company Number: NL-SA-2016SA061702

PATIENT
  Age: 61 Year
  Sex: Male
  Weight: 86 kg

DRUGS (8)
  1. BARNIDIPINE [Concomitant]
     Active Substance: BARNIDIPINE
     Route: 048
     Dates: start: 20131125
  2. RAMIPRIL. [Concomitant]
     Active Substance: RAMIPRIL
     Route: 048
     Dates: start: 20101125
  3. METFORMIN [Concomitant]
     Active Substance: METFORMIN HYDROCHLORIDE
     Route: 048
     Dates: start: 20030101
  4. HYDROCHLOROTHIAZIDE. [Concomitant]
     Active Substance: HYDROCHLOROTHIAZIDE
     Route: 048
     Dates: start: 20150211
  5. LANTUS SOLOSTAR [Suspect]
     Active Substance: INSULIN GLARGINE
     Indication: TYPE 2 DIABETES MELLITUS
     Route: 058
     Dates: start: 20090401
  6. SOLOSTAR [Concomitant]
     Active Substance: DEVICE
     Dates: start: 20090401
  7. SIMVASTATIN. [Concomitant]
     Active Substance: SIMVASTATIN
     Route: 048
     Dates: start: 20061101
  8. GLICLAZIDE [Concomitant]
     Active Substance: GLICLAZIDE
     Route: 048
     Dates: start: 20040128

REACTIONS (5)
  - Blood glucose decreased [Recovered/Resolved]
  - Injected limb mobility decreased [Recovered/Resolved]
  - Dysgeusia [Recovered/Resolved]
  - Product use issue [Unknown]
  - Injection site haemorrhage [Recovered/Resolved]

NARRATIVE: CASE EVENT DATE: 20160223
